FAERS Safety Report 5265423-X (Version None)
Quarter: 2007Q1

REPORT INFORMATION
  Report Type: 
  Country: None (occurrence: None)
  Receive Date: 20070314
  Receipt Date: 20070302
  Transmission Date: 20070707
  Serious: Yes (Other)
  Sender: FDA-Public Use
  Company Number: NL-PFIZER INC-2007017662

PATIENT
  Age: 77 Year
  Sex: Female
  Weight: 65 kg

DRUGS (2)
  1. CARDURA [Suspect]
     Indication: HYPERTENSION
     Route: 048
  2. NIFEDIPINE [Suspect]
     Indication: HYPERTENSION
     Dates: start: 20070301, end: 20070301

REACTIONS (3)
  - BLOOD PRESSURE INADEQUATELY CONTROLLED [None]
  - DIZZINESS [None]
  - DYSSTASIA [None]
